FAERS Safety Report 8012281-6 (Version None)
Quarter: 2011Q4

REPORT INFORMATION
  Report Type: 
  Country: None (occurrence: None)
  Receive Date: 20111228
  Receipt Date: 20111223
  Transmission Date: 20120403
  Serious: No
  Sender: FDA-Public Use
  Company Number: US-BAYER-2011-123818

PATIENT
  Age: 48 Year
  Sex: Female
  Weight: 58.957 kg

DRUGS (2)
  1. NAPROXEN (ALEVE) [Suspect]
     Route: 048
  2. MIDOL LIQUID GELS [Concomitant]
     Dosage: 2 U, UNK
     Route: 048

REACTIONS (1)
  - NO ADVERSE EVENT [None]
